FAERS Safety Report 11846296 (Version 2)
Quarter: 2016Q1

REPORT INFORMATION
  Report Type: Spontaneous
  Country: US (occurrence: US)
  Receive Date: 20151217
  Receipt Date: 20160107
  Transmission Date: 20160526
  Serious: No
  Sender: FDA-Public Use
  Company Number: US-BAXALTA-2015BLT003284

PATIENT
  Sex: Female

DRUGS (1)
  1. GAMMAGARD LIQUID [Suspect]
     Active Substance: HUMAN IMMUNOGLOBULIN G
     Indication: PRODUCT USED FOR UNKNOWN INDICATION
     Dosage: 47 G, EVERY 3 WK
     Route: 042
     Dates: start: 20140407

REACTIONS (6)
  - Memory impairment [Unknown]
  - Allergy test positive [Unknown]
  - House dust allergy [Unknown]
  - Mycotic allergy [Unknown]
  - Seasonal allergy [Unknown]
  - Allergy to plants [Unknown]
